FAERS Safety Report 24582386 (Version 1)
Quarter: 2024Q4

REPORT INFORMATION
  Report Type: Spontaneous
  Country: FR (occurrence: FR)
  Receive Date: 20241106
  Receipt Date: 20241106
  Transmission Date: 20250114
  Serious: Yes (Other)
  Sender: ORGANON
  Company Number: FR-ORGANON-O2411FRA000196

PATIENT
  Age: 76 Year
  Sex: Female

DRUGS (5)
  1. BETAMETHASONE DIPROPIONATE\BETAMETHASONE SODIUM PHOSPHATE [Suspect]
     Active Substance: BETAMETHASONE DIPROPIONATE\BETAMETHASONE SODIUM PHOSPHATE
     Dosage: UNK (ON THE RIGHT KNEE)
     Dates: start: 20241030
  2. FEMARA [Concomitant]
     Active Substance: LETROZOLE
     Indication: Neoplasm malignant
     Dosage: UNK
  3. JANUVIA [Concomitant]
     Active Substance: SITAGLIPTIN PHOSPHATE
     Indication: Diabetes mellitus
     Dosage: UNK
  4. ATORVASTATIN [Concomitant]
     Active Substance: ATORVASTATIN
     Dosage: UNK
  5. HYALURONIC ACID [Concomitant]
     Active Substance: HYALURONIC ACID
     Dosage: UNK (AFTER THE INJECTION)
     Dates: start: 20241030

REACTIONS (5)
  - Loss of consciousness [Unknown]
  - Vomiting [Unknown]
  - Hyperhidrosis [Unknown]
  - Tremor [Unknown]
  - Pruritus [Unknown]

NARRATIVE: CASE EVENT DATE: 20241030
